FAERS Safety Report 7546755-9 (Version None)
Quarter: 2011Q2

REPORT INFORMATION
  Report Type: 
  Country: None (occurrence: None)
  Receive Date: 20110614
  Receipt Date: 20110606
  Transmission Date: 20111010
  Serious: Yes (Hospitalization)
  Sender: FDA-Public Use
  Company Number: B0725344A

PATIENT

DRUGS (1)
  1. VALTREX [Suspect]
     Route: 048

REACTIONS (1)
  - FAECES DISCOLOURED [None]
